FAERS Safety Report 10075390 (Version 1)
Quarter: 2014Q2

REPORT INFORMATION
  Report Type: Spontaneous
  Country: US (occurrence: None)
  Receive Date: 20140411
  Receipt Date: 20140411
  Transmission Date: 20141212
  Serious: Yes (Death, Hospitalization)
  Sender: FDA-Public Use
  Company Number: None

PATIENT
  Age: 68 Year
  Sex: Male
  Weight: 92 kg

DRUGS (1)
  1. CARBOPLATIN [Suspect]
     Dates: start: 20140224, end: 20140331

REACTIONS (3)
  - Anaemia [None]
  - Rectal haemorrhage [None]
  - Cardio-respiratory arrest [None]
